FAERS Safety Report 11811964 (Version 1)
Quarter: 2015Q4

REPORT INFORMATION
  Report Type: Spontaneous
  Country: US (occurrence: US)
  Receive Date: 20151208
  Receipt Date: 20151208
  Transmission Date: 20160305
  Serious: No
  Sender: FDA-Public Use
  Company Number: US-BAYER-2015-484477

PATIENT
  Sex: Female

DRUGS (1)
  1. MENSTRIDOL [Suspect]
     Active Substance: NAPROXEN SODIUM
     Indication: DYSMENORRHOEA
     Dosage: UNK, QID
     Route: 048

REACTIONS (3)
  - Drug ineffective [Unknown]
  - Product use issue [None]
  - Abdominal discomfort [Unknown]
